FAERS Safety Report 6793880-6 (Version None)
Quarter: 2010Q2

REPORT INFORMATION
  Report Type: 
  Country: None (occurrence: None)
  Receive Date: 20100624
  Receipt Date: 20100217
  Transmission Date: 20101027
  Serious: Yes (Other)
  Sender: FDA-Public Use
  Company Number: US-MYLANLABS-2010S1000091

PATIENT
  Age: 38 Year
  Sex: Female

DRUGS (9)
  1. CLOZAPINE [Suspect]
     Indication: SCHIZOPHRENIA
     Route: 048
     Dates: end: 20100113
  2. CLOZAPINE [Suspect]
     Route: 048
  3. DIVALPROEX SODIUM EXTENDED RELEASE [Concomitant]
     Indication: MOOD DISORDER DUE TO A GENERAL MEDICAL CONDITION
     Route: 048
  4. TRICOR [Concomitant]
     Indication: BLOOD CHOLESTEROL INCREASED
     Route: 048
  5. GLIPIZIDE [Concomitant]
     Indication: TYPE 2 DIABETES MELLITUS
     Route: 048
  6. LEVOXYL [Concomitant]
     Indication: HYPOTHYROIDISM
     Route: 048
  7. PROPRANOLOL [Concomitant]
     Indication: HYPERTENSION
     Route: 048
  8. FLUVOXAMINE MALEATE [Concomitant]
  9. VITAMIN D [Concomitant]

REACTIONS (2)
  - GRANULOCYTOPENIA [None]
  - PNEUMONIA [None]
